FAERS Safety Report 6956579-9 (Version None)
Quarter: 2010Q3

REPORT INFORMATION
  Report Type: 
  Country: None (occurrence: None)
  Receive Date: 20100826
  Receipt Date: 20100812
  Transmission Date: 20110219
  Serious: Yes (Death, Congenital Anomaly, Other)
  Sender: FDA-Public Use
  Company Number: AUR-APL-2010-01052

PATIENT
  Age: 16 Day
  Sex: Female
  Weight: 3.41 kg

DRUGS (5)
  1. ZIDOVUDINE [Suspect]
     Dosage: TRANSPLACENTAL
     Route: 064
     Dates: start: 20090318
  2. DARUNAVIR ETHANOLATE [Suspect]
     Dosage: 600MG, BID, TRANSPLACENT
     Route: 064
     Dates: start: 20090310
  3. ISENTRESS [Suspect]
     Indication: HIV INFECTION
     Dosage: 400MG, BID, TRANSPLACENTAL
     Route: 064
     Dates: start: 20090319
  4. RITONAVIR [Suspect]
     Dosage: TRANSPLACENTAL
     Route: 064
     Dates: start: 20090310
  5. TRUVADA [Suspect]
     Dosage: TRANSPLACENTAL
     Route: 064

REACTIONS (9)
  - AORTIC VALVE DISEASE [None]
  - CAESAREAN SECTION [None]
  - CARDIAC MURMUR [None]
  - CONGENITAL PULMONARY VALVE DISORDER [None]
  - DYSPLASIA [None]
  - MATERNAL DRUGS AFFECTING FOETUS [None]
  - NEONATAL RESPIRATORY ARREST [None]
  - SUDDEN INFANT DEATH SYNDROME [None]
  - VENTRICULAR HYPERTROPHY [None]
